FAERS Safety Report 21212498 (Version 1)
Quarter: 2022Q3

REPORT INFORMATION
  Report Type: Spontaneous
  Country: US (occurrence: None)
  Receive Date: 20220812
  Receipt Date: 20220812
  Transmission Date: 20221027
  Serious: Yes (Hospitalization)
  Sender: FDA-Public Use
  Company Number: None

PATIENT
  Age: 69 Year
  Sex: Female
  Weight: 120.6 kg

DRUGS (11)
  1. ILUMYA [Suspect]
     Active Substance: TILDRAKIZUMAB-ASMN
     Indication: Psoriatic arthropathy
  2. ATENOLOL [Concomitant]
  3. DIPHENOXYLATE [Concomitant]
     Active Substance: DIPHENOXYLATE
  4. DOXEPIN [Concomitant]
     Active Substance: DOXEPIN
  5. LEVOTHYROXINE [Concomitant]
     Active Substance: LEVOTHYROXINE
  6. SODIUM BICARBONATE [Concomitant]
     Active Substance: SODIUM BICARBONATE
  7. METOLAZONE [Concomitant]
     Active Substance: METOLAZONE
  8. SPIRONOLACTONE [Concomitant]
     Active Substance: SPIRONOLACTONE
  9. VITAMIN B12 [Concomitant]
     Active Substance: CYANOCOBALAMIN
  10. VITAMIN D3 [Concomitant]
     Active Substance: CHOLECALCIFEROL
  11. ELIQUIS [Concomitant]
     Active Substance: APIXABAN

REACTIONS (8)
  - Dyspnoea [None]
  - Muscular weakness [None]
  - Gait inability [None]
  - Dizziness [None]
  - Diarrhoea [None]
  - Asthenia [None]
  - Vocal cord paralysis [None]
  - Dysphonia [None]

NARRATIVE: CASE EVENT DATE: 20220324
